FAERS Safety Report 10023105 (Version 47)
Quarter: 2021Q2

REPORT INFORMATION
  Report Type: Other
  Country: CA (occurrence: CA)
  Receive Date: 20140320
  Receipt Date: 20210623
  Transmission Date: 20210716
  Serious: Yes (Hospitalization, Other)
  Sender: FDA-Public Use
  Company Number: CA-ROCHE-1367988

PATIENT
  Age: 66 Year
  Sex: Female

DRUGS (35)
  1. XOLAIR [Suspect]
     Active Substance: OMALIZUMAB
     Route: 058
     Dates: start: 20150804
  2. XOLAIR [Suspect]
     Active Substance: OMALIZUMAB
     Route: 058
     Dates: start: 20151223
  3. XOLAIR [Suspect]
     Active Substance: OMALIZUMAB
     Route: 058
     Dates: start: 20160810
  4. XOLAIR [Suspect]
     Active Substance: OMALIZUMAB
     Route: 058
     Dates: start: 20161102
  5. XOLAIR [Suspect]
     Active Substance: OMALIZUMAB
     Route: 058
     Dates: start: 20150121
  6. XOLAIR [Suspect]
     Active Substance: OMALIZUMAB
     Route: 058
     Dates: start: 20160615
  7. XOLAIR [Suspect]
     Active Substance: OMALIZUMAB
     Route: 058
     Dates: start: 20160519
  8. XOLAIR [Suspect]
     Active Substance: OMALIZUMAB
     Route: 058
     Dates: start: 20160523
  9. PREDNISONE. [Suspect]
     Active Substance: PREDNISONE
     Dosage: 50 MG FOR 7 DAYS
     Route: 065
     Dates: start: 20170306
  10. XOLAIR [Suspect]
     Active Substance: OMALIZUMAB
     Route: 058
     Dates: start: 20160213
  11. XOLAIR [Suspect]
     Active Substance: OMALIZUMAB
     Route: 058
     Dates: start: 2017
  12. XOLAIR [Suspect]
     Active Substance: OMALIZUMAB
     Route: 058
     Dates: start: 20171004
  13. XOLAIR [Suspect]
     Active Substance: OMALIZUMAB
     Route: 058
     Dates: start: 20171101
  14. XOLAIR [Suspect]
     Active Substance: OMALIZUMAB
     Route: 058
     Dates: start: 20180221
  15. XOLAIR [Suspect]
     Active Substance: OMALIZUMAB
     Route: 058
     Dates: start: 20180418
  16. XOLAIR [Suspect]
     Active Substance: OMALIZUMAB
     Indication: CHRONIC SPONTANEOUS URTICARIA
     Route: 058
     Dates: start: 20140114
  17. XOLAIR [Suspect]
     Active Substance: OMALIZUMAB
     Route: 058
     Dates: start: 20140213, end: 20140213
  18. XOLAIR [Suspect]
     Active Substance: OMALIZUMAB
     Route: 058
     Dates: start: 20170222
  19. XOLAIR [Suspect]
     Active Substance: OMALIZUMAB
     Route: 058
     Dates: start: 20150130
  20. PREDNISONE. [Suspect]
     Active Substance: PREDNISONE
     Indication: LOWER RESPIRATORY TRACT INFECTION
     Route: 065
     Dates: start: 20160623
  21. XOLAIR [Suspect]
     Active Substance: OMALIZUMAB
     Route: 058
     Dates: start: 20160518
  22. XOLAIR [Suspect]
     Active Substance: OMALIZUMAB
     Route: 058
     Dates: start: 20160615
  23. XOLAIR [Suspect]
     Active Substance: OMALIZUMAB
     Route: 058
     Dates: start: 20170616
  24. XOLAIR [Suspect]
     Active Substance: OMALIZUMAB
     Route: 058
     Dates: start: 20170809
  25. SINGULAIR [Suspect]
     Active Substance: MONTELUKAST SODIUM
     Indication: RESPIRATORY RATE DECREASED
     Route: 065
     Dates: start: 20160907
  26. XOLAIR [Suspect]
     Active Substance: OMALIZUMAB
     Route: 058
     Dates: start: 20160420
  27. PREDNISONE. [Suspect]
     Active Substance: PREDNISONE
     Indication: ASTHMA
     Route: 065
     Dates: start: 201401
  28. XOLAIR [Suspect]
     Active Substance: OMALIZUMAB
     Indication: ASTHMA
     Route: 058
     Dates: start: 20130716
  29. XOLAIR [Suspect]
     Active Substance: OMALIZUMAB
     Route: 058
     Dates: start: 20141126
  30. XOLAIR [Suspect]
     Active Substance: OMALIZUMAB
     Route: 058
     Dates: start: 20150708
  31. XOLAIR [Suspect]
     Active Substance: OMALIZUMAB
     Route: 058
     Dates: start: 20170125
  32. XOLAIR [Suspect]
     Active Substance: OMALIZUMAB
     Route: 058
     Dates: start: 20170712
  33. XOLAIR [Suspect]
     Active Substance: OMALIZUMAB
     Route: 058
     Dates: start: 20190320
  34. XOLAIR [Suspect]
     Active Substance: OMALIZUMAB
     Route: 058
     Dates: start: 20200812
  35. PREDNISONE. [Suspect]
     Active Substance: PREDNISONE
     Dosage: 6 DAYS
     Route: 065
     Dates: start: 201710

REACTIONS (54)
  - Feeling abnormal [Unknown]
  - Bronchitis [Unknown]
  - Lower respiratory tract infection [Unknown]
  - Oxygen saturation decreased [Unknown]
  - Gait disturbance [Unknown]
  - Blood pressure increased [Recovered/Resolved]
  - Infection susceptibility increased [Unknown]
  - Middle insomnia [Unknown]
  - Dysphonia [Unknown]
  - General physical health deterioration [Unknown]
  - Pleural effusion [Unknown]
  - Palpitations [Unknown]
  - Sciatica [Unknown]
  - Hyperglycaemia [Unknown]
  - Respiratory rate decreased [Unknown]
  - Secretion discharge [Unknown]
  - Respiratory distress [Unknown]
  - Sinusitis [Unknown]
  - Dysstasia [Unknown]
  - Lethargy [Unknown]
  - Gastroenteritis viral [Unknown]
  - Cough [Unknown]
  - Vomiting [Unknown]
  - Illness [Unknown]
  - Blood iron decreased [Unknown]
  - Malaise [Unknown]
  - Cardiac failure [Unknown]
  - Condition aggravated [Unknown]
  - Nasal mucosal disorder [Unknown]
  - Forced expiratory volume decreased [Unknown]
  - Chest pain [Unknown]
  - Asthenia [Unknown]
  - Weight decreased [Unknown]
  - Device allergy [Unknown]
  - Dyspnoea [Not Recovered/Not Resolved]
  - Fall [Unknown]
  - Arthralgia [Unknown]
  - Back pain [Unknown]
  - Chest discomfort [Unknown]
  - Pulmonary embolism [Unknown]
  - Joint swelling [Unknown]
  - Viral upper respiratory tract infection [Unknown]
  - Pain [Unknown]
  - Oropharyngeal pain [Unknown]
  - Forced vital capacity decreased [Unknown]
  - Swelling face [Unknown]
  - Muscular weakness [Unknown]
  - Obesity [Unknown]
  - Asthma [Not Recovered/Not Resolved]
  - Blood glucose increased [Recovering/Resolving]
  - Dyspnoea exertional [Unknown]
  - Obstructive airways disorder [Unknown]
  - Limb injury [Unknown]
  - Wheezing [Unknown]

NARRATIVE: CASE EVENT DATE: 201401
